FAERS Safety Report 24291424 (Version 1)
Quarter: 2024Q3

REPORT INFORMATION
  Report Type: Spontaneous
  Country: US (occurrence: None)
  Receive Date: 20240906
  Receipt Date: 20240906
  Transmission Date: 20241017
  Serious: No
  Sender: DOMPE FARMACEUTICI
  Company Number: US-FARMAPROD-202308-2571

PATIENT
  Sex: Female

DRUGS (18)
  1. OXERVATE [Suspect]
     Active Substance: CENEGERMIN-BKBJ
     Indication: Neurotrophic keratopathy
     Route: 047
     Dates: start: 20230817
  2. OXERVATE [Suspect]
     Active Substance: CENEGERMIN-BKBJ
     Indication: Ulcerative keratitis
  3. OMEPRAZOLE [Concomitant]
     Active Substance: OMEPRAZOLE
  4. LOVASTATIN [Concomitant]
     Active Substance: LOVASTATIN
  5. LEVOTHYROXINE SODIUM [Concomitant]
     Active Substance: LEVOTHYROXINE SODIUM
  6. GLUCOSAMINE/CHONDROITIN [Concomitant]
  7. CELEBREX [Concomitant]
     Active Substance: CELECOXIB
  8. CALCIUM\VITAMIN D [Concomitant]
     Active Substance: CALCIUM\VITAMIN D
     Dosage: 500MG-1000 MG
  9. BIOTIN [Concomitant]
     Active Substance: BIOTIN
  10. FOSAMAX [Concomitant]
     Active Substance: ALENDRONATE SODIUM
  11. DOXYCYCLINE HYCLATE [Concomitant]
     Active Substance: DOXYCYCLINE HYCLATE
  12. VITAMIN C [Concomitant]
     Active Substance: ASCORBIC ACID
  13. VALTREX [Concomitant]
     Active Substance: VALACYCLOVIR HYDROCHLORIDE
  14. ARTIFICIAL TEARS [Concomitant]
     Dosage: 0.1%-0.3%
  15. MEDROXYPROGESTERONE ACETATE [Concomitant]
     Active Substance: MEDROXYPROGESTERONE ACETATE
  16. VIGAMOX [Concomitant]
     Active Substance: MOXIFLOXACIN HYDROCHLORIDE
  17. ZIRGAN [Concomitant]
     Active Substance: GANCICLOVIR
  18. PREDNISOLONE / NEPAFENAC [Concomitant]

REACTIONS (4)
  - Eye pain [Not Recovered/Not Resolved]
  - Eyelid pain [Unknown]
  - Photophobia [Unknown]
  - Blepharospasm [Recovered/Resolved]
